FAERS Safety Report 6604107-X (Version None)
Quarter: 2010Q1

REPORT INFORMATION
  Report Type: 
  Country: None (occurrence: None)
  Receive Date: 20100226
  Receipt Date: 20090518
  Transmission Date: 20100710
  Serious: No
  Sender: FDA-Public Use
  Company Number: A0785912A

PATIENT

DRUGS (1)
  1. LAMICTAL CD [Suspect]
     Indication: DRUG USE FOR UNKNOWN INDICATION

REACTIONS (4)
  - ASTHENIA [None]
  - HYPOAESTHESIA [None]
  - PAIN [None]
  - PARAESTHESIA [None]
